FAERS Safety Report 9316176 (Version 2)
Quarter: 2013Q2

REPORT INFORMATION
  Report Type: Spontaneous
  Country: US (occurrence: US)
  Receive Date: 20130530
  Receipt Date: 20130619
  Transmission Date: 20140414
  Serious: Yes (Other)
  Sender: FDA-Public Use
  Company Number: US-PFIZER INC-2013163460

PATIENT
  Age: 46 Year
  Sex: Female
  Weight: 51.25 kg

DRUGS (3)
  1. NEURONTIN [Suspect]
     Dosage: UNK
  2. ARTHROTEC [Suspect]
     Dosage: UNK
  3. HYDROCODONE [Concomitant]
     Dosage: UNK

REACTIONS (10)
  - Road traffic accident [Unknown]
  - Foot fracture [Unknown]
  - Limb discomfort [Unknown]
  - Face injury [Unknown]
  - Renal injury [Unknown]
  - Osteoporosis [Unknown]
  - Back injury [Unknown]
  - Joint injury [Unknown]
  - Arthralgia [Unknown]
  - Pain in extremity [Unknown]
